FAERS Safety Report 12196125 (Version 2)
Quarter: 2016Q2

REPORT INFORMATION
  Report Type: Spontaneous
  Country: US (occurrence: US)
  Receive Date: 20160321
  Receipt Date: 20160404
  Transmission Date: 20160815
  Serious: Yes (Other)
  Sender: FDA-Public Use
  Company Number: US-PFIZER INC-2016153067

PATIENT
  Age: 78 Year
  Sex: Female

DRUGS (2)
  1. ROBITUSSIN SUGAR FREE COUGH [Suspect]
     Active Substance: DEXTROMETHORPHAN HYDROBROMIDE\GUAIFENESIN
     Indication: INFLUENZA LIKE ILLNESS
     Dosage: UNK UNK, SINGLE
  2. MUCINEX [Concomitant]
     Active Substance: GUAIFENESIN
     Dosage: UNK

REACTIONS (2)
  - Urinary retention [Recovered/Resolved]
  - Dehydration [Unknown]
